FAERS Safety Report 25122719 (Version 5)
Quarter: 2025Q3

REPORT INFORMATION
  Report Type: Report from Study
  Country: US (occurrence: US)
  Receive Date: 20250326
  Receipt Date: 20250922
  Transmission Date: 20251021
  Serious: No
  Sender: AVERITAS
  Company Number: US-GRUNENTHAL-2025-104070

PATIENT
  Sex: Male

DRUGS (3)
  1. QUTENZA [Suspect]
     Active Substance: CAPSAICIN
     Indication: Diabetic neuropathy
     Route: 061
     Dates: start: 20250122, end: 20250122
  2. QUTENZA [Suspect]
     Active Substance: CAPSAICIN
     Route: 061
     Dates: start: 20250423, end: 20250423
  3. QUTENZA [Suspect]
     Active Substance: CAPSAICIN
     Route: 061
     Dates: start: 20250723, end: 20250723

REACTIONS (6)
  - Feeling hot [Unknown]
  - Muscle spasms [Unknown]
  - Muscular weakness [Unknown]
  - Pain in extremity [Unknown]
  - Limb discomfort [Unknown]
  - Hypoaesthesia [Unknown]
